FAERS Safety Report 16452897 (Version 1)
Quarter: 2019Q2

REPORT INFORMATION
  Report Type: Spontaneous
  Country: US (occurrence: US)
  Receive Date: 20190619
  Receipt Date: 20190619
  Transmission Date: 20190711
  Serious: No
  Sender: FDA-Public Use
  Company Number: US-SA-2019SA159687

PATIENT
  Age: 33 Year
  Sex: Female

DRUGS (2)
  1. THYROGEN [Suspect]
     Active Substance: THYROTROPIN ALFA
     Indication: DIAGNOSTIC PROCEDURE
     Dosage: UNK UNK, QD
     Route: 030
     Dates: start: 201906
  2. THYROGEN [Suspect]
     Active Substance: THYROTROPIN ALFA
     Indication: THYROID CANCER

REACTIONS (1)
  - Off label use [Unknown]

NARRATIVE: CASE EVENT DATE: 20190607
